FAERS Safety Report 24110580 (Version 1)
Quarter: 2024Q3

REPORT INFORMATION
  Report Type: Spontaneous
  Country: US (occurrence: US)
  Receive Date: 20240718
  Receipt Date: 20240718
  Transmission Date: 20241017
  Serious: Yes (Hospitalization, Other)
  Sender: RECKITT BENCKISER
  Company Number: US-INDIVIOR US-INDV-145904-2024

PATIENT
  Age: 61 Year
  Sex: Male

DRUGS (10)
  1. SUBLOCADE [Suspect]
     Active Substance: BUPRENORPHINE
     Indication: Drug use disorder
     Dosage: 300 MILLIGRAM, QMO
     Route: 065
  2. SUBLOCADE [Suspect]
     Active Substance: BUPRENORPHINE
  3. BUPRENORPHINE [Suspect]
     Active Substance: BUPRENORPHINE
     Indication: Drug use disorder
     Dosage: 24 MILLIGRAM (DAY 02)
     Route: 065
  4. BUPRENORPHINE [Suspect]
     Active Substance: BUPRENORPHINE
     Dosage: 32 MILLIGRAM, QD (DAY 05 + 06)
     Route: 065
  5. BUPRENORPHINE [Suspect]
     Active Substance: BUPRENORPHINE
     Dosage: 48 MILLIGRAM, QD (DAY 07 TO 10)
     Route: 065
  6. BUPRENORPHINE [Suspect]
     Active Substance: BUPRENORPHINE
     Dosage: 40 - 48 MILLIGRAM, QD (DAY 10 TO 14)
     Route: 065
  7. BUPRENORPHINE [Suspect]
     Active Substance: BUPRENORPHINE
     Dosage: 32 MILLIGRAM, QD (DAY 14 TO 28)
     Route: 065
  8. BUPRENORPHINE [Suspect]
     Active Substance: BUPRENORPHINE
     Dosage: 24 - 32MILLIGRAM, QD (DAY 28 TO 61)
     Route: 065
  9. BUPRENORPHINE [Suspect]
     Active Substance: BUPRENORPHINE
     Dosage: 24 MILLIGRAM, QD (DAY 61 TO 89)
     Route: 065
  10. NALTREXONE [Suspect]
     Active Substance: NALTREXONE
     Indication: Product used for unknown indication
     Dosage: UNK
     Route: 065

REACTIONS (4)
  - Encephalopathy [Recovered/Resolved]
  - Drug withdrawal syndrome [Recovering/Resolving]
  - Inappropriate schedule of product administration [Recovered/Resolved]
  - Prescribed overdose [Recovered/Resolved]
